FAERS Safety Report 21536237 (Version 2)
Quarter: 2022Q4

REPORT INFORMATION
  Report Type: Spontaneous
  Country: US (occurrence: US)
  Receive Date: 20221101
  Receipt Date: 20221121
  Transmission Date: 20230113
  Serious: Yes (Other)
  Sender: FDA-Public Use
  Company Number: US-009507513-2210USA010342

PATIENT
  Age: 65 Year
  Sex: Male

DRUGS (4)
  1. KEYTRUDA [Suspect]
     Active Substance: PEMBROLIZUMAB
     Indication: Squamous cell carcinoma of head and neck
     Dosage: 200 MILLIGRAM, Q3W (ON DAY 1)
  2. CARBOPLATIN [Concomitant]
     Active Substance: CARBOPLATIN
     Indication: Squamous cell carcinoma of head and neck
     Dosage: AREA UNDER THE CURVE 4-5 ON DAY 1
  3. PACLITAXEL [Concomitant]
     Active Substance: PACLITAXEL
     Indication: Squamous cell carcinoma of head and neck
     Dosage: 80 MILLIGRAM/SQ. METER, ONCE DAILY ON DAYS 1 AND 8
  4. CISPLATIN [Concomitant]
     Active Substance: CISPLATIN
     Dosage: 40 MILLIGRAM/SQ. METER, QW

REACTIONS (3)
  - Immune-mediated gastritis [Unknown]
  - Immune-mediated adrenal insufficiency [Recovered/Resolved]
  - Off label use [Unknown]
